FAERS Safety Report 10583911 (Version 3)
Quarter: 2014Q4

REPORT INFORMATION
  Report Type: Spontaneous
  Country: JP (occurrence: JP)
  Receive Date: 20141114
  Receipt Date: 20141212
  Transmission Date: 20150529
  Serious: Yes (Death, Hospitalization)
  Sender: FDA-Public Use
  Company Number: JP-AMGEN-JPNSP2014088303

PATIENT
  Age: 79 Year
  Sex: Male
  Weight: 57 kg

DRUGS (12)
  1. GLAKAY [Concomitant]
     Indication: OSTEOPOROSIS
     Dosage: 15 MG, TID
     Route: 048
  2. MEVALOTIN [Concomitant]
     Active Substance: PRAVASTATIN SODIUM
     Indication: HYPERLIPIDAEMIA
     Dosage: 5 MG, BID
     Route: 048
  3. MUCOSTA [Concomitant]
     Active Substance: REBAMIPIDE
     Indication: CHRONIC GASTRITIS
     Dosage: 100 MG, TID
     Route: 048
  4. MYSLEE [Concomitant]
     Active Substance: ZOLPIDEM TARTRATE
     Indication: INSOMNIA
     Dosage: 10 MG, QD
     Route: 048
  5. HEPARIN SODIUM. [Concomitant]
     Active Substance: HEPARIN SODIUM
     Indication: THROMBOSIS
  6. FESIN                              /00023550/ [Concomitant]
     Active Substance: IRON SUCROSE
     Indication: IRON DEFICIENCY
     Dosage: 40 MG, QWK
     Route: 042
     Dates: start: 20140829
  7. NESP [Suspect]
     Active Substance: DARBEPOETIN ALFA
     Indication: NEPHROGENIC ANAEMIA
     Dosage: 120 MUG, QWK
     Route: 040
     Dates: start: 20140428
  8. TAKEPRON [Concomitant]
     Active Substance: LANSOPRAZOLE
     Indication: CHRONIC GASTRITIS
     Dosage: 15 MG, QD
     Route: 048
  9. GASMOTIN [Concomitant]
     Active Substance: MOSAPRIDE CITRATE
     Indication: CHRONIC GASTRITIS
     Dosage: 5 MG, TID
     Route: 048
  10. MAINTATE [Concomitant]
     Active Substance: BISOPROLOL FUMARATE
     Indication: HYPERTENSION
     Dosage: 0.625 MG, QD
     Route: 048
     Dates: start: 20140101
  11. METHYCOBAL [Concomitant]
     Active Substance: METHYLCOBALAMIN
     Indication: NEUROPATHY PERIPHERAL
     Dosage: 500 MUG, TID
     Route: 048
  12. HEPARIN SODIUM. [Concomitant]
     Active Substance: HEPARIN SODIUM
     Indication: THROMBOSIS
     Dosage: 3500 IU, 3X/WEEK
     Route: 042
     Dates: start: 1995

REACTIONS (2)
  - Basilar artery thrombosis [Fatal]
  - Gastric cancer [Not Recovered/Not Resolved]

NARRATIVE: CASE EVENT DATE: 20140821
